FAERS Safety Report 23067173 (Version 1)
Quarter: 2023Q4

REPORT INFORMATION
  Report Type: Spontaneous
  Country: ZA (occurrence: ZA)
  Receive Date: 20231016
  Receipt Date: 20231016
  Transmission Date: 20240110
  Serious: Yes (Life-Threatening, Hospitalization, Other)
  Sender: FDA-Public Use
  Company Number: ZA-002147023-NVSC2023ZA154075

PATIENT
  Age: 59 Year
  Sex: Female
  Weight: 72 kg

DRUGS (2)
  1. FULVESTRANT [Suspect]
     Active Substance: FULVESTRANT
     Indication: Hormone receptor positive HER2 negative breast cancer
     Dosage: UNK
     Route: 065
     Dates: start: 20230606, end: 20230704
  2. ALPELISIB [Suspect]
     Active Substance: ALPELISIB
     Indication: Hormone receptor positive HER2 negative breast cancer
     Dosage: 150 MG, BID
     Route: 048
     Dates: start: 20230606, end: 20230704

REACTIONS (1)
  - Diabetic ketoacidosis [Unknown]

NARRATIVE: CASE EVENT DATE: 20230615
